FAERS Safety Report 5190746-2 (Version None)
Quarter: 2006Q4

REPORT INFORMATION
  Report Type: 
  Country: None (occurrence: None)
  Receive Date: 20061222
  Receipt Date: 20060424
  Transmission Date: 20070319
  Serious: Yes (Other)
  Sender: FDA-Public Use
  Company Number: US-AVENTIS-200613841US

PATIENT
  Age: 75 Year
  Sex: Female

DRUGS (6)
  1. LANTUS [Suspect]
     Indication: DIABETES MELLITUS NON-INSULIN-DEPENDENT
     Dates: start: 20050101
  2. OPTICLIK (INSULIN INJECTION PEN) [Suspect]
     Dates: start: 20060420
  3. BETAPACE [Concomitant]
     Dosage: DOSE: UNK
  4. XANAX [Concomitant]
     Dosage: DOSE: UNK
  5. TYLENOL W/ CODEINE [Concomitant]
     Dosage: DOSE: UNK
     Dates: start: 20060424
  6. DARVOCET-N 100 [Concomitant]
     Dosage: DOSE: UNK
     Dates: end: 20060424

REACTIONS (4)
  - BLOOD GLUCOSE INCREASED [None]
  - KIDNEY INFECTION [None]
  - MACULAR DEGENERATION [None]
  - VISUAL DISTURBANCE [None]
